FAERS Safety Report 10228900 (Version 2)
Quarter: 2014Q2

REPORT INFORMATION
  Report Type: Spontaneous
  Country: US (occurrence: US)
  Receive Date: 20140610
  Receipt Date: 20140610
  Transmission Date: 20141212
  Serious: Yes (Death, Hospitalization)
  Sender: FDA-Public Use
  Company Number: US-GLAXOSMITHKLINE-A0790863A

PATIENT
  Age: 47 Year
  Sex: Male
  Weight: 102.7 kg

DRUGS (5)
  1. AVANDIA [Suspect]
     Indication: TYPE 2 DIABETES MELLITUS
     Dosage: 4MG TWICE PER DAY
     Route: 048
     Dates: start: 20030723, end: 200705
  2. PRANDIN [Concomitant]
  3. METFORMIN [Concomitant]
  4. COZAAR [Concomitant]
  5. DIOVAN [Concomitant]

REACTIONS (12)
  - Brain death [Fatal]
  - Myocardial infarction [Unknown]
  - Coronary artery disease [Unknown]
  - Cerebrovascular accident [Unknown]
  - Acute coronary syndrome [Unknown]
  - Cardiogenic shock [Unknown]
  - Coagulopathy [Unknown]
  - Haemorrhage [Unknown]
  - Shock [Unknown]
  - Pulseless electrical activity [Unknown]
  - Cardiac arrest [Unknown]
  - Cardiac failure congestive [Fatal]
